FAERS Safety Report 9670724 (Version 1)
Quarter: 2013Q4

REPORT INFORMATION
  Report Type: Spontaneous
  Country: US (occurrence: US)
  Receive Date: 20131106
  Receipt Date: 20131106
  Transmission Date: 20140711
  Serious: Yes (Other)
  Sender: FDA-Public Use
  Company Number: US-JNJFOC-20131016111

PATIENT
  Sex: Female

DRUGS (4)
  1. ACETYLSALICYLIC ACID [Suspect]
     Indication: PROPHYLAXIS
     Route: 065
     Dates: start: 20120905, end: 20121223
  2. FAMOTIDINE [Suspect]
     Route: 065
  3. FAMOTIDINE [Suspect]
     Indication: GASTROOESOPHAGEAL REFLUX DISEASE
     Route: 065
     Dates: start: 20120905, end: 20121223
  4. VALSARTAN [Suspect]
     Indication: HYPERTENSION
     Dosage: 10MG/320MG
     Route: 065
     Dates: start: 20121102, end: 20121223

REACTIONS (1)
  - Exposure during pregnancy [Recovered/Resolved]
